FAERS Safety Report 6712329-2 (Version None)
Quarter: 2010Q2

REPORT INFORMATION
  Report Type: 
  Country: None (occurrence: None)
  Receive Date: 20100505
  Receipt Date: 20100423
  Transmission Date: 20101027
  Serious: Yes (Hospitalization)
  Sender: FDA-Public Use
  Company Number: JP-ABBOTT-10P-087-0642160-00

PATIENT
  Age: 68 Year
  Sex: Male

DRUGS (9)
  1. LEUPROLIDE ACETATE [Suspect]
     Indication: PROSTATE CANCER STAGE IV
     Route: 058
     Dates: start: 20060807
  2. CASODEX [Concomitant]
     Indication: PROSTATE CANCER STAGE IV
     Route: 048
     Dates: start: 20060628, end: 20080713
  3. ODYNE [Concomitant]
     Indication: PROSTATE CANCER STAGE IV
     Route: 048
     Dates: start: 20080714
  4. NORVASC [Concomitant]
     Indication: HYPERTENSION
     Route: 048
  5. ABILIT [Concomitant]
     Indication: GASTRIC ULCER
     Route: 048
  6. RESMIT [Concomitant]
     Indication: PSYCHOSOMATIC DISEASE
     Route: 048
  7. GLIMICRON [Concomitant]
     Indication: DIABETES MELLITUS
     Route: 048
  8. DOGMATYL [Concomitant]
     Indication: DRUG USE FOR UNKNOWN INDICATION
     Route: 048
     Dates: start: 20070913
  9. URSO 250 [Concomitant]
     Indication: DRUG USE FOR UNKNOWN INDICATION
     Route: 048
     Dates: start: 20080714

REACTIONS (1)
  - CEREBRAL INFARCTION [None]
